FAERS Safety Report 21842862 (Version 2)
Quarter: 2023Q1

REPORT INFORMATION
  Report Type: Report from Study
  Country: US (occurrence: US)
  Receive Date: 20230110
  Receipt Date: 20230131
  Transmission Date: 20230417
  Serious: Yes (Hospitalization, Other)
  Sender: FDA-Public Use
  Company Number: US-PFIZER INC-2020250509

PATIENT
  Age: 60 Year
  Sex: Male

DRUGS (5)
  1. CRESEMBA [Suspect]
     Active Substance: ISAVUCONAZONIUM SULFATE
     Indication: Heart transplant
     Dosage: 372 MG, ONCE DAILY
     Route: 048
     Dates: start: 202005, end: 2021
  2. CRESEMBA [Suspect]
     Active Substance: ISAVUCONAZONIUM SULFATE
     Indication: Fungal infection
     Dosage: UNK, UNKNOWN FREQ
     Route: 065
     Dates: start: 2022
  3. VFEND [Suspect]
     Active Substance: VORICONAZOLE
     Indication: Fungal infection
     Dosage: UNK, UNKNOWN FREQ
     Route: 065
  4. TACROLIMUS [Suspect]
     Active Substance: TACROLIMUS
     Indication: Immunosuppressant drug therapy
     Dosage: UNK, UNKNOWN FREQ
     Route: 065
  5. TACROLIMUS [Suspect]
     Active Substance: TACROLIMUS
     Dosage: UNK, ONCE DAILY (0.5)
     Route: 065

REACTIONS (10)
  - Heart transplant rejection [Unknown]
  - Disease progression [Unknown]
  - Immunosuppressant drug level increased [Not Recovered/Not Resolved]
  - Inability to afford medication [Unknown]
  - Gastric disorder [Unknown]
  - Illness [Not Recovered/Not Resolved]
  - Eye disorder [Not Recovered/Not Resolved]
  - Renal disorder [Not Recovered/Not Resolved]
  - Liver disorder [Not Recovered/Not Resolved]
  - Off label use [Unknown]
